FAERS Safety Report 8437870 (Version 4)
Quarter: 2014Q3

REPORT INFORMATION
  Report Type: Spontaneous
  Country: US (occurrence: US)
  Receive Date: 20120302
  Receipt Date: 20140812
  Transmission Date: 20150326
  Serious: Yes (Hospitalization, Other)
  Sender: FDA-Public Use
  Company Number: US-ROCHE-788371

PATIENT
  Age: 38 Year
  Sex: Male
  Weight: 59.02 kg

DRUGS (5)
  1. ACCUTANE [Suspect]
     Active Substance: ISOTRETINOIN
     Route: 065
     Dates: start: 2000, end: 2001
  2. ACCUTANE [Suspect]
     Active Substance: ISOTRETINOIN
     Route: 065
  3. ACCUTANE [Suspect]
     Active Substance: ISOTRETINOIN
     Route: 065
  4. ACCUTANE [Suspect]
     Active Substance: ISOTRETINOIN
     Indication: PRODUCT USED FOR UNKNOWN INDICATION
     Route: 065
     Dates: start: 1990, end: 1991
  5. ACCUTANE [Suspect]
     Active Substance: ISOTRETINOIN
     Route: 065
     Dates: start: 1999, end: 2000

REACTIONS (11)
  - Upper respiratory tract infection [Unknown]
  - Conjunctivitis [Unknown]
  - Nephrolithiasis [Unknown]
  - Inflammatory bowel disease [Unknown]
  - Rectal polyp [Unknown]
  - Emotional distress [Unknown]
  - Chapped lips [Unknown]
  - Intestinal obstruction [Unknown]
  - Rhinitis allergic [Unknown]
  - Crohn^s disease [Unknown]
  - Cheilitis [Unknown]

NARRATIVE: CASE EVENT DATE: 1986
